FAERS Safety Report 15481587 (Version 1)
Quarter: 2018Q4

REPORT INFORMATION
  Report Type: Spontaneous
  Country: US (occurrence: US)
  Receive Date: 20181010
  Receipt Date: 20181010
  Transmission Date: 20190205
  Serious: Yes (Other)
  Sender: FDA-Public Use
  Company Number: US-CIPLA LTD.-2018US21659

PATIENT

DRUGS (3)
  1. LAMOTRIGINE. [Suspect]
     Active Substance: LAMOTRIGINE
     Dosage: 300 UNK, UNK
     Route: 065
     Dates: start: 20161225, end: 20170124
  2. LAMOTRIGINE. [Suspect]
     Active Substance: LAMOTRIGINE
     Indication: EPILEPSY
     Dosage: 200 UNK, UNK
     Route: 065
     Dates: start: 20160623, end: 20161224
  3. LAMOTRIGINE. [Suspect]
     Active Substance: LAMOTRIGINE
     Dosage: 350 UNK, UNK
     Route: 065
     Dates: start: 20170125, end: 20170214

REACTIONS (4)
  - Prolonged rupture of membranes [Unknown]
  - Premature delivery [Unknown]
  - Premature rupture of membranes [Unknown]
  - Exposure during pregnancy [Unknown]
